FAERS Safety Report 21538001 (Version 1)
Quarter: 2022Q4

REPORT INFORMATION
  Report Type: Report from Study
  Country: US (occurrence: US)
  Receive Date: 20221101
  Receipt Date: 20221101
  Transmission Date: 20230112
  Serious: Yes (Other)
  Sender: FDA-Public Use
  Company Number: US-ABBVIE-4183908

PATIENT
  Sex: Male

DRUGS (1)
  1. HUMIRA [Suspect]
     Active Substance: ADALIMUMAB
     Indication: Product used for unknown indication
     Dosage: FORM STRENGTH - 40 MG
     Route: 058

REACTIONS (3)
  - Diverticulitis [Recovering/Resolving]
  - Infection [Recovering/Resolving]
  - Intestinal perforation [Recovering/Resolving]
